FAERS Safety Report 4955776-1 (Version None)
Quarter: 2006Q1

REPORT INFORMATION
  Report Type: 
  Country: None (occurrence: None)
  Receive Date: 20060127
  Receipt Date: 20041229
  Transmission Date: 20060701
  Serious: Yes (Hospitalization, Other)
  Sender: FDA-Public Use
  Company Number: 04-12-1822

PATIENT
  Age: 46 Year
  Sex: Male

DRUGS (1)
  1. CLOZAPINE [Suspect]
     Indication: SCHIZOAFFECTIVE DISORDER
     Dosage: 275 MG QD, ORAL
     Route: 048
     Dates: start: 20010301, end: 20041201

REACTIONS (1)
  - NEUROLEPTIC MALIGNANT SYNDROME [None]
